FAERS Safety Report 6121046-1 (Version None)
Quarter: 2009Q1

REPORT INFORMATION
  Report Type: 
  Country: None (occurrence: None)
  Receive Date: 20090317
  Receipt Date: 20090305
  Transmission Date: 20090719
  Serious: Yes (Other)
  Sender: FDA-Public Use
  Company Number: AU-WYE-H08516909

PATIENT
  Sex: Female

DRUGS (3)
  1. SOMAC [Suspect]
     Indication: GASTROENTERITIS
     Dosage: 40 MG, UNSPECIFIED FREQUENCY
     Dates: start: 20090101, end: 20090101
  2. SOMAC [Suspect]
     Indication: ULCER HAEMORRHAGE
  3. ACETYLSALICYLIC ACID [Concomitant]
     Dosage: UNKNOWN

REACTIONS (4)
  - BLOOD URINE PRESENT [None]
  - NEPHRITIS [None]
  - OEDEMA [None]
  - PROTEIN URINE [None]
